FAERS Safety Report 12868152 (Version 2)
Quarter: 2017Q1

REPORT INFORMATION
  Report Type: Report from Study
  Country: US (occurrence: US)
  Receive Date: 20161020
  Receipt Date: 20170124
  Transmission Date: 20170428
  Serious: No
  Sender: FDA-Public Use
  Company Number: US-AMGEN-USASL2016128872

PATIENT
  Age: 57 Year
  Sex: Male

DRUGS (1)
  1. REPATHA [Suspect]
     Active Substance: EVOLOCUMAB
     Indication: PRODUCT USED FOR UNKNOWN INDICATION
     Dosage: 140 MG, TWICW MONTHLY
     Route: 065

REACTIONS (8)
  - Injection site pain [Unknown]
  - Back pain [Unknown]
  - Nervousness [Unknown]
  - Injection site reaction [Unknown]
  - Flushing [Unknown]
  - Injection site haemorrhage [Unknown]
  - Palpitations [Unknown]
  - Injection site warmth [Unknown]
